FAERS Safety Report 6715046-8 (Version None)
Quarter: 2010Q2

REPORT INFORMATION
  Report Type: 
  Country: None (occurrence: None)
  Receive Date: 20100507
  Receipt Date: 20100428
  Transmission Date: 20101027
  Serious: Yes (Other)
  Sender: FDA-Public Use
  Company Number: AU-PFIZER INC-2010053903

PATIENT
  Age: 86 Year
  Sex: Female

DRUGS (1)
  1. CADUET [Suspect]
     Dosage: UNK

REACTIONS (3)
  - SUICIDAL IDEATION [None]
  - THINKING ABNORMAL [None]
  - TREMOR [None]
